FAERS Safety Report 6236152-0 (Version None)
Quarter: 2009Q2

REPORT INFORMATION
  Report Type: 
  Country: None (occurrence: None)
  Receive Date: 20090617
  Receipt Date: 20090302
  Transmission Date: 20091009
  Serious: Yes (Other)
  Sender: FDA-Public Use
  Company Number: WWISSUE-267

PATIENT
  Sex: Female

DRUGS (1)
  1. BUTALBITAL, ASPIRIN, AND CAFFEINE [Suspect]
     Dates: start: 20090201

REACTIONS (1)
  - HYPERSENSITIVITY [None]
